FAERS Safety Report 8845364 (Version 1)
Quarter: 2012Q4

REPORT INFORMATION
  Report Type: 
  Country: US (occurrence: US)
  Receive Date: 20121017
  Receipt Date: 20121017
  Transmission Date: 20130627
  Serious: No
  Sender: FDA-Public Use
  Company Number: US-009507513-1210USA006550

PATIENT
  Sex: Male

DRUGS (2)
  1. CORICIDIN HBP [Suspect]
     Indication: NASOPHARYNGITIS
     Dosage: UNK, once
     Route: 048
     Dates: start: 20121007
  2. CORICIDIN HBP [Suspect]
     Dosage: UNK UNK, hs
     Route: 048
     Dates: start: 20121007

REACTIONS (2)
  - Local swelling [Not Recovered/Not Resolved]
  - Feeling abnormal [Unknown]
